FAERS Safety Report 21880671 (Version 1)
Quarter: 2023Q1

REPORT INFORMATION
  Report Type: Spontaneous
  Country: US (occurrence: US)
  Receive Date: 20230118
  Receipt Date: 20230118
  Transmission Date: 20230417
  Serious: Yes (Other)
  Sender: FDA-Public Use
  Company Number: US-BAYER-2023A003297

PATIENT
  Age: 77 Year
  Sex: Female

DRUGS (1)
  1. CORICIDIN HBP MAXIMUM STRENGTH COLD, COUGH AND FLU [Suspect]
     Active Substance: ACETAMINOPHEN\DEXTROMETHORPHAN HYDROBROMIDE\GUAIFENESIN
     Indication: Pain
     Dosage: 1ST AND 15 MINS LATER 2ND TABLET
     Route: 048

REACTIONS (3)
  - Palpitations [Not Recovered/Not Resolved]
  - Complication associated with device [Not Recovered/Not Resolved]
  - Dyspnoea [Not Recovered/Not Resolved]
